FAERS Safety Report 6613696-0 (Version None)
Quarter: 2010Q1

REPORT INFORMATION
  Report Type: 
  Country: None (occurrence: None)
  Receive Date: 20100225
  Receipt Date: 20100217
  Transmission Date: 20100710
  Serious: No
  Sender: FDA-Public Use
  Company Number: 2010000908

PATIENT
  Sex: Female

DRUGS (3)
  1. FENTORA [Suspect]
     Indication: NEURALGIA
     Dosage: (400 MCG), BU
     Route: 002
  2. ACTIQ [Suspect]
     Indication: NEURALGIA
     Dosage: (600 MCG), BU
     Route: 002
  3. OXYCODONE HCL [Concomitant]

REACTIONS (1)
  - DRUG PRESCRIBING ERROR [None]
